FAERS Safety Report 7578383-3 (Version None)
Quarter: 2011Q2

REPORT INFORMATION
  Report Type: 
  Country: None (occurrence: None)
  Receive Date: 20110621
  Receipt Date: 20110613
  Transmission Date: 20111010
  Serious: Yes (Other)
  Sender: FDA-Public Use
  Company Number: 2011SP025704

PATIENT
  Age: 69 Year
  Sex: Female
  Weight: 45 kg

DRUGS (2)
  1. REBETOL [Suspect]
     Indication: HEPATITIS C
     Dosage: 400 MG;QD;PO
     Route: 048
     Dates: start: 20100514, end: 20110413
  2. INTERFERON [Suspect]
     Indication: HEPATITIS C
     Dosage: 6 MIU;TIW;IV
     Route: 042
     Dates: start: 20100514, end: 20110413

REACTIONS (1)
  - INTERSTITIAL LUNG DISEASE [None]
